FAERS Safety Report 6908880-2 (Version None)
Quarter: 2010Q3

REPORT INFORMATION
  Report Type: 
  Country: None (occurrence: None)
  Receive Date: 20100805
  Receipt Date: 20100729
  Transmission Date: 20110219
  Serious: Yes (Hospitalization)
  Sender: FDA-Public Use
  Company Number: US-AMGEN-KDC427994

PATIENT
  Sex: Male

DRUGS (4)
  1. PANITUMUMAB [Suspect]
     Indication: COLORECTAL CANCER
     Route: 042
     Dates: start: 20100421
  2. LEUCOVORIN CALCIUM [Suspect]
  3. FLUOROURACIL [Suspect]
  4. OXALIPLATIN [Suspect]

REACTIONS (1)
  - COLITIS [None]
